FAERS Safety Report 8076025-4 (Version None)
Quarter: 2012Q1

REPORT INFORMATION
  Report Type: 
  Country: None (occurrence: None)
  Receive Date: 20120127
  Receipt Date: 20110504
  Transmission Date: 20120608
  Serious: No
  Sender: FDA-Public Use
  Company Number: US-GLAXOSMITHKLINE-A0925787A

PATIENT
  Age: 51 Year
  Sex: Female
  Weight: 75 kg

DRUGS (4)
  1. ABILIFY [Concomitant]
  2. EFFEXOR [Concomitant]
  3. WELLBUTRIN [Suspect]
     Indication: BLOOD CATECHOLAMINES ABNORMAL
     Dosage: 75MG TWICE PER DAY
     Route: 048
     Dates: start: 20110101
  4. KLONOPIN [Concomitant]

REACTIONS (2)
  - WEIGHT INCREASED [None]
  - PAIN [None]
